FAERS Safety Report 13402953 (Version 2)
Quarter: 2020Q3

REPORT INFORMATION
  Report Type: Spontaneous
  Country: US (occurrence: US)
  Receive Date: 20170404
  Receipt Date: 20200207
  Transmission Date: 20201104
  Serious: Yes (Other)
  Sender: FDA-Public Use
  Company Number: US-ROCHE-1756667

PATIENT
  Age: 30 Year
  Sex: Female

DRUGS (5)
  1. TAXOL [Concomitant]
     Active Substance: PACLITAXEL
     Indication: ADENOCARCINOMA
     Route: 065
     Dates: start: 201409, end: 201501
  2. TAXOL [Concomitant]
     Active Substance: PACLITAXEL
     Indication: NEUROENDOCRINE CARCINOMA
  3. AVASTIN [Suspect]
     Active Substance: BEVACIZUMAB
     Indication: ADENOCARCINOMA
     Route: 065
     Dates: start: 201409, end: 201501
  4. AVASTIN [Suspect]
     Active Substance: BEVACIZUMAB
     Indication: NEUROENDOCRINE CARCINOMA
  5. TASELISIB. [Suspect]
     Active Substance: TASELISIB
     Indication: NEUROENDOCRINE CARCINOMA
     Route: 065
     Dates: start: 2016

REACTIONS (3)
  - Neuroendocrine carcinoma [Not Recovered/Not Resolved]
  - Metastases to lymph nodes [Not Recovered/Not Resolved]
  - Metastases to liver [Not Recovered/Not Resolved]

NARRATIVE: CASE EVENT DATE: 201603
